FAERS Safety Report 7059890 (Version 4)
Quarter: 2015Q1

REPORT INFORMATION
  Report Type: Spontaneous
  Country: GR (occurrence: None)
  Receive Date: 20090709
  Receipt Date: 20150218
  Transmission Date: 20150721
  Serious: Yes (Hospitalization)
  Sender: FDA-Public Use
  Company Number: 2009001899

PATIENT
  Age: 62 Year
  Sex: Male

DRUGS (14)
  1. TARCEVA [Suspect]
     Active Substance: ERLOTINIB HYDROCHLORIDE
     Indication: LUNG NEOPLASM MALIGNANT
     Dosage: (150 MG,QD), ORAL
     Route: 048
     Dates: start: 20090101, end: 20090112
  2. LOBIVON (NEBIVOLOL HYDROCHLORIDE) [Concomitant]
  3. UNIMAZOLE (THIAMAZOLE) [Concomitant]
  4. ZOFRAN [Concomitant]
     Active Substance: ONDANSETRON HYDROCHLORIDE
  5. SYMBICORT [Concomitant]
     Active Substance: BUDESONIDE\FORMOTEROL FUMARATE DIHYDRATE
  6. PROCORALAN (IVABRADINE HYDROCHLORIDE) TABLET [Concomitant]
     Active Substance: IVABRADINE HYDROCHLORIDE
  7. FENISTIL (DIMETINDENE MALEATE) [Concomitant]
  8. INHOHEP (TINZAPARIN SODIUM) [Concomitant]
  9. DOCETAXEL. [Suspect]
     Active Substance: DOCETAXEL
     Indication: LUNG NEOPLASM MALIGNANT
     Dosage: (75 MG/M2,Q3W), INTRAVENOUS
     Route: 042
     Dates: start: 20081229
  10. FRUMIL (AMILORIDE HYDROCHLORIDE, FUROSEMIDE) [Concomitant]
  11. SPIRIVA (TIOTROPIUM BROMIDE) [Concomitant]
  12. DEXAMETHASONE (DEXAMETHASONE) [Concomitant]
     Active Substance: DEXAMETHASONE
  13. CIPRALEX (ESCITALOPRAM) [Concomitant]
  14. SINTROM [Suspect]
     Active Substance: ACENOCOUMAROL
     Indication: HEART VALVE REPLACEMENT
     Route: 048
     Dates: start: 2004

REACTIONS (3)
  - Febrile neutropenia [None]
  - Haemoptysis [None]
  - International normalised ratio increased [None]

NARRATIVE: CASE EVENT DATE: 20090105
